FAERS Safety Report 19905809 (Version 6)
Quarter: 2025Q1

REPORT INFORMATION
  Report Type: Spontaneous
  Country: CA (occurrence: CA)
  Receive Date: 20210930
  Receipt Date: 20250327
  Transmission Date: 20250409
  Serious: Yes (Hospitalization, Other)
  Sender: COVIS PHARMA GMBH
  Company Number: CA-ASTRAZENECA-2020SF03837

PATIENT
  Age: 35 Year
  Sex: Female

DRUGS (38)
  1. ALVESCO [Suspect]
     Active Substance: CICLESONIDE
     Indication: Product used for unknown indication
     Dosage: 2 DOSAGE FORM, QD
     Route: 055
  2. BENRALIZUMAB [Suspect]
     Active Substance: BENRALIZUMAB
     Indication: Product used for unknown indication
     Route: 058
  3. BENRALIZUMAB [Suspect]
     Active Substance: BENRALIZUMAB
     Route: 058
  4. SYMBICORT [Suspect]
     Active Substance: BUDESONIDE\FORMOTEROL FUMARATE DIHYDRATE
     Indication: Product used for unknown indication
  5. SYMBICORT [Suspect]
     Active Substance: BUDESONIDE\FORMOTEROL FUMARATE DIHYDRATE
     Route: 055
  6. THEOPHYLLINE [Suspect]
     Active Substance: THEOPHYLLINE
     Indication: Product used for unknown indication
     Route: 065
  7. GLYCOPYRROLATE [Suspect]
     Active Substance: GLYCOPYRROLATE
     Indication: Product used for unknown indication
  8. GLYCOPYRROLATE [Suspect]
     Active Substance: GLYCOPYRROLATE
     Route: 055
  9. ALBUTEROL SULFATE [Suspect]
     Active Substance: ALBUTEROL SULFATE
     Indication: Product used for unknown indication
     Route: 065
  10. ALBUTEROL SULFATE [Suspect]
     Active Substance: ALBUTEROL SULFATE
     Route: 065
  11. ADVAIR HFA [Suspect]
     Active Substance: FLUTICASONE PROPIONATE\SALMETEROL XINAFOATE
     Indication: Product used for unknown indication
     Route: 065
  12. ADVAIR HFA [Suspect]
     Active Substance: FLUTICASONE PROPIONATE\SALMETEROL XINAFOATE
     Route: 065
  13. AZITHROMYCIN [Suspect]
     Active Substance: AZITHROMYCIN
     Indication: Product used for unknown indication
     Dosage: 500 MILLIGRAM, TID
     Route: 065
  14. BENADRYL [Suspect]
     Active Substance: DIPHENHYDRAMINE HYDROCHLORIDE
     Indication: Urticaria
     Route: 065
  15. BREO ELLIPTA [Suspect]
     Active Substance: FLUTICASONE FUROATE\VILANTEROL TRIFENATATE
     Indication: Product used for unknown indication
  16. BREO ELLIPTA [Suspect]
     Active Substance: FLUTICASONE FUROATE\VILANTEROL TRIFENATATE
     Route: 055
  17. CETIRIZINE [Suspect]
     Active Substance: CETIRIZINE HYDROCHLORIDE
     Indication: Urticaria
     Dosage: 20 MILLIGRAM, BID
     Route: 065
  18. CETIRIZINE [Suspect]
     Active Substance: CETIRIZINE HYDROCHLORIDE
     Indication: Hypersensitivity
  19. VITAMIN D [Suspect]
     Active Substance: VITAMIN D NOS
     Indication: Product used for unknown indication
     Route: 065
  20. METHYLPREDNISOLONE [Suspect]
     Active Substance: METHYLPREDNISOLONE
     Indication: Product used for unknown indication
     Route: 065
  21. METHYLPREDNISOLONE [Suspect]
     Active Substance: METHYLPREDNISOLONE
     Route: 065
  22. MONTELUKAST [Suspect]
     Active Substance: MONTELUKAST
     Indication: Product used for unknown indication
     Dosage: 10 MILLIGRAM, QD
     Route: 065
  23. NUCALA [Suspect]
     Active Substance: MEPOLIZUMAB
     Indication: Asthma
     Dosage: 100 MILLIGRAM, UNK, FREQUENCY: UNK
     Route: 065
     Dates: start: 20191106
  24. OMALIZUMAB [Suspect]
     Active Substance: OMALIZUMAB
     Indication: Product used for unknown indication
     Route: 065
  25. PREDNISONE [Suspect]
     Active Substance: PREDNISONE
     Indication: Product used for unknown indication
     Dosage: 15 MILLIGRAM, QD
     Route: 065
  26. PREDNISONE [Suspect]
     Active Substance: PREDNISONE
     Indication: Product used for unknown indication
     Route: 065
  27. SINGULAIR [Suspect]
     Active Substance: MONTELUKAST SODIUM
     Indication: Product used for unknown indication
     Route: 065
  28. SOLU-MEDROL [Suspect]
     Active Substance: METHYLPREDNISOLONE SODIUM SUCCINATE
     Indication: Product used for unknown indication
     Route: 065
  29. SPIRIVA [Suspect]
     Active Substance: TIOTROPIUM BROMIDE MONOHYDRATE
     Indication: Product used for unknown indication
     Route: 065
  30. FORMOTEROL FUMARATE [Suspect]
     Active Substance: FORMOTEROL FUMARATE
     Indication: Product used for unknown indication
     Route: 065
  31. SYNTHROID [Suspect]
     Active Substance: LEVOTHYROXINE SODIUM
     Indication: Product used for unknown indication
     Route: 065
  32. ALBUTEROL SULFATE [Suspect]
     Active Substance: ALBUTEROL SULFATE
     Indication: Product used for unknown indication
     Route: 065
  33. NASONEX [Suspect]
     Active Substance: MOMETASONE FUROATE
     Indication: Product used for unknown indication
     Route: 065
  34. SULFAMETHOXAZOLE [Suspect]
     Active Substance: SULFAMETHOXAZOLE
     Indication: Product used for unknown indication
     Route: 065
  35. PSEUDOEPHEDRINE HYDROCHLORIDE [Suspect]
     Active Substance: PSEUDOEPHEDRINE HYDROCHLORIDE
  36. TRIMETHOPRIM [Suspect]
     Active Substance: TRIMETHOPRIM
  37. MOMETASONE FUROATE [Suspect]
     Active Substance: MOMETASONE FUROATE
  38. BUDESONIDE [Suspect]
     Active Substance: BUDESONIDE
     Dosage: 4 DOSAGE FORM, QOD

REACTIONS (28)
  - Asthenia [Unknown]
  - Asthma [Recovering/Resolving]
  - Bronchial obstruction [Unknown]
  - Chest discomfort [Unknown]
  - Conjunctivitis [Unknown]
  - Cough [Not Recovered/Not Resolved]
  - Disease recurrence [Unknown]
  - Dizziness [Unknown]
  - Eosinophilia [Unknown]
  - Feeling abnormal [Unknown]
  - Feeling hot [Unknown]
  - Hyperventilation [Unknown]
  - Increased bronchial secretion [Unknown]
  - Maternal exposure during pregnancy [Unknown]
  - Middle insomnia [Recovering/Resolving]
  - Nasal congestion [Recovering/Resolving]
  - Nausea [Unknown]
  - Palpitations [Unknown]
  - Productive cough [Unknown]
  - Rhinitis [Not Recovered/Not Resolved]
  - Wheezing [Not Recovered/Not Resolved]
  - Hypersensitivity [Unknown]
  - Multiple allergies [Not Recovered/Not Resolved]
  - Urticaria [Recovering/Resolving]
  - Therapeutic product effect incomplete [Unknown]
  - Illness [Recovered/Resolved]
  - Sneezing [Unknown]
  - Dyspnoea [Unknown]
